FAERS Safety Report 10192319 (Version 1)
Quarter: 2014Q2

REPORT INFORMATION
  Report Type: Spontaneous
  Country: US (occurrence: US)
  Receive Date: 20140523
  Receipt Date: 20140523
  Transmission Date: 20141212
  Serious: Yes (Other)
  Sender: FDA-Public Use
  Company Number: PHEH2014US010007

PATIENT
  Age: 61 Year
  Sex: Male

DRUGS (3)
  1. GLEEVEC [Suspect]
     Indication: GASTROINTESTINAL STROMAL TUMOUR
     Dosage: 400 MG, QD
     Dates: start: 200211, end: 200711
  2. GLEEVEC [Suspect]
     Dosage: 600 MG, QD
  3. GLEEVEC [Suspect]
     Dosage: 800 MG, DAILY
     Dates: start: 201212

REACTIONS (4)
  - Hepatic cancer metastatic [Unknown]
  - Gastrointestinal stromal tumour [Unknown]
  - Neoplasm recurrence [Unknown]
  - Abdominal pain [Unknown]
